FAERS Safety Report 4843682-2 (Version None)
Quarter: 2005Q4

REPORT INFORMATION
  Report Type: 
  Country: None (occurrence: None)
  Receive Date: 20051202
  Receipt Date: 20050622
  Transmission Date: 20060501
  Serious: Yes (Other)
  Sender: FDA-Public Use
  Company Number: 2005AP03535

PATIENT
  Age: 82 Year
  Sex: Female

DRUGS (1)
  1. XYLOCAINE DRIP [Suspect]
     Indication: NEURALGIA
     Route: 041

REACTIONS (1)
  - SOMNOLENCE [None]
